FAERS Safety Report 21001699 (Version 1)
Quarter: 2022Q2

REPORT INFORMATION
  Report Type: Spontaneous
  Country: US (occurrence: US)
  Receive Date: 20220624
  Receipt Date: 20220624
  Transmission Date: 20220721
  Serious: No
  Sender: FDA-Public Use
  Company Number: US-009507513-2206USA004237

PATIENT
  Age: 24 Year
  Sex: Male

DRUGS (6)
  1. CUBICIN [Suspect]
     Active Substance: DAPTOMYCIN
     Indication: Enterococcal bacteraemia
     Dosage: UNK
  2. CUBICIN [Suspect]
     Active Substance: DAPTOMYCIN
     Indication: Enterococcal infection
  3. INVANZ [Suspect]
     Active Substance: ERTAPENEM SODIUM
     Indication: Enterococcal infection
  4. INVANZ [Suspect]
     Active Substance: ERTAPENEM SODIUM
     Indication: Enterococcal bacteraemia
  5. MEROPENEM [Concomitant]
     Active Substance: MEROPENEM
     Indication: Enterococcal infection
  6. MEROPENEM [Concomitant]
     Active Substance: MEROPENEM
     Indication: Enterococcal infection

REACTIONS (1)
  - Product use in unapproved indication [Unknown]
